FAERS Safety Report 23736910 (Version 1)
Quarter: 2024Q2

REPORT INFORMATION
  Report Type: Spontaneous
  Country: IT (occurrence: IT)
  Receive Date: 20240412
  Receipt Date: 20240412
  Transmission Date: 20240716
  Serious: Yes (Death, Life-Threatening, Hospitalization, Other)
  Sender: FDA-Public Use
  Company Number: IT-SUN PHARMACEUTICAL INDUSTRIES LTD-2024R1-440752

PATIENT
  Sex: Male

DRUGS (7)
  1. AMPHOTERICIN B [Suspect]
     Active Substance: AMPHOTERICIN B
     Indication: Product used for unknown indication
     Dosage: UNK
     Route: 065
  2. MEROPENEM [Suspect]
     Active Substance: MEROPENEM
     Indication: Product used for unknown indication
     Dosage: UNK
     Route: 065
  3. DOXORUBICIN [Suspect]
     Active Substance: DOXORUBICIN
     Indication: Chemotherapy
     Dosage: UNK
     Route: 065
  4. VINCRISTINE [Suspect]
     Active Substance: VINCRISTINE
     Indication: Chemotherapy
     Dosage: UNK
     Route: 065
  5. CYCLOPHOSPHAMIDE [Suspect]
     Active Substance: CYCLOPHOSPHAMIDE
     Indication: Chemotherapy
     Dosage: UNK (6 CYCLES)
     Route: 065
  6. LINEZOLID [Suspect]
     Active Substance: LINEZOLID
     Indication: Product used for unknown indication
     Dosage: UNK
     Route: 065
  7. RITUXIMAB [Suspect]
     Active Substance: RITUXIMAB
     Indication: Chemotherapy
     Dosage: UNK (2 CYCLES)
     Route: 065

REACTIONS (16)
  - Lymphoma [Fatal]
  - Cardiopulmonary failure [Unknown]
  - Pulmonary embolism [Unknown]
  - Basal ganglia haemorrhage [Unknown]
  - Hydrocephalus [Unknown]
  - Oedema [Unknown]
  - Drug ineffective [Unknown]
  - Blood lactic acid increased [Unknown]
  - Metabolic acidosis [Unknown]
  - Pneumonia [Unknown]
  - Hyperglycaemia [Recovered/Resolved]
  - Pancytopenia [Unknown]
  - Renal failure [Unknown]
  - Peripheral sensory neuropathy [Unknown]
  - Toxicity to various agents [Not Recovered/Not Resolved]
  - Pyrexia [Unknown]
